FAERS Safety Report 22621652 (Version 2)
Quarter: 2023Q2

REPORT INFORMATION
  Report Type: Spontaneous
  Country: US (occurrence: US)
  Receive Date: 20230620
  Receipt Date: 20230626
  Transmission Date: 20230722
  Serious: No
  Sender: FDA-Public Use
  Company Number: US-AMGEN-USASP2023105111

PATIENT
  Age: 68 Year
  Sex: Female

DRUGS (2)
  1. KYPROLIS [Suspect]
     Active Substance: CARFILZOMIB
     Indication: Plasma cell myeloma
     Dosage: 154 MILLIGRAM, QWK, 154 MILLIGRAM (USING 2 X 60MG, 1 X 30MG, AND 1 X10MG (160MG))
     Route: 042
  2. KYPROLIS [Suspect]
     Active Substance: CARFILZOMIB
     Dosage: 134 MILLIGRAM, QWK, 134 MILLIGRAM, 2 X 60MG, 1 X 30MG, AND 1 X10MG
     Route: 042

REACTIONS (1)
  - Intercepted product preparation error [Unknown]

NARRATIVE: CASE EVENT DATE: 20230616
